FAERS Safety Report 22276010 (Version 1)
Quarter: 2023Q2

REPORT INFORMATION
  Report Type: Spontaneous
  Country: US (occurrence: None)
  Receive Date: 20230501
  Receipt Date: 20230501
  Transmission Date: 20230722
  Serious: Yes (unspecified)
  Sender: FDA-Public Use
  Company Number: None

PATIENT
  Age: 41 Year
  Sex: Female
  Weight: 95.85 kg

DRUGS (4)
  1. ARIXTRA [Suspect]
     Active Substance: FONDAPARINUX SODIUM
     Indication: Venous thrombosis
     Dosage: FREQUENCY : DAILY;?
     Dates: start: 20140101, end: 20230116
  2. ANAKINRA [Concomitant]
     Active Substance: ANAKINRA
     Dates: start: 20160101
  3. METHOTREXATE [Concomitant]
     Active Substance: METHOTREXATE
     Dates: start: 20180101
  4. SILDENAFIL [Concomitant]
     Active Substance: SILDENAFIL
     Dates: start: 20140101

REACTIONS (2)
  - Visual field defect [None]
  - Maculopathy [None]

NARRATIVE: CASE EVENT DATE: 20230112
